FAERS Safety Report 6913482-8 (Version None)
Quarter: 2010Q3

REPORT INFORMATION
  Report Type: 
  Country: None (occurrence: None)
  Receive Date: 20100716
  Receipt Date: 20100125
  Transmission Date: 20110219
  Serious: Yes (Other)
  Sender: FDA-Public Use
  Company Number: 2009280345

PATIENT
  Age: 70 Year
  Sex: Female
  Weight: 81.6 kg

DRUGS (4)
  1. CELEBREX [Suspect]
     Indication: ARTHRITIS
     Dosage: 200 MG, 1X/DAY, ORAL
     Route: 048
     Dates: start: 19990101, end: 20091006
  2. ENALAPRIL MALEATE W/HYDROCHLOROTIAZIDE (ENLAPRIL MALEATE, HYDROCHLOROT [Concomitant]
  3. SERTRALINE HYDROCHLORIDE [Concomitant]
  4. ASPIRIN [Concomitant]

REACTIONS (3)
  - BLOOD CHOLESTEROL INCREASED [None]
  - DRUG INEFFECTIVE [None]
  - OEDEMA PERIPHERAL [None]
